FAERS Safety Report 7354410-3 (Version None)
Quarter: 2011Q1

REPORT INFORMATION
  Report Type: 
  Country: None (occurrence: None)
  Receive Date: 20110316
  Receipt Date: 20110303
  Transmission Date: 20110831
  Serious: Yes (Hospitalization)
  Sender: FDA-Public Use
  Company Number: PHHO2011DE04075

PATIENT

DRUGS (3)
  1. CYCLOSPORINE [Suspect]
     Dosage: 100MG
     Route: 048
  2. MYCOPHENOLATE MOFETIL [Suspect]
     Indication: LUNG TRANSPLANT
     Dosage: 1500MG
     Route: 048
     Dates: start: 20090528
  3. CYCLOSPORINE [Suspect]
     Indication: LUNG TRANSPLANT
     Dosage: 125MG
     Route: 048

REACTIONS (2)
  - SEPSIS [None]
  - PNEUMONIA [None]
